FAERS Safety Report 9584248 (Version 1)
Quarter: 2013Q4

REPORT INFORMATION
  Report Type: Spontaneous
  Country: US (occurrence: US)
  Receive Date: 20131002
  Receipt Date: 20131002
  Transmission Date: 20140711
  Serious: No
  Sender: FDA-Public Use
  Company Number: US-AMGEN-USASP2013051546

PATIENT
  Age: 47 Year
  Sex: Female
  Weight: 77.1 kg

DRUGS (7)
  1. ENBREL [Suspect]
     Indication: PRODUCT USED FOR UNKNOWN INDICATION
     Dosage: 50 MG, QWK
     Route: 058
  2. METHOTREXATE [Concomitant]
     Dosage: 2.5 MG, UNK
  3. RAMIPRIL [Concomitant]
     Dosage: 1.25 MG, UNK
  4. TRIAMTEREEN/HYDROCHLOOTTHIAZIDE [Concomitant]
     Dosage: 37.5-25 UNK UNK
  5. SYNTHROID [Concomitant]
     Dosage: 50 MUG, UNK
  6. FLEXERIL                           /00428402/ [Concomitant]
     Dosage: 5 MG, UNK
  7. DICLOFENAC [Concomitant]
     Dosage: 75 MG, UNK

REACTIONS (2)
  - Pain [Unknown]
  - Rheumatoid arthritis [Unknown]
